FAERS Safety Report 17515307 (Version 2)
Quarter: 2023Q1

REPORT INFORMATION
  Report Type: Report from Study
  Country: FR (occurrence: None)
  Receive Date: 20200309
  Receipt Date: 20230214
  Transmission Date: 20230418
  Serious: Yes (Hospitalization)
  Sender: FDA-Public Use
  Company Number: FR-ROCHE-2558240

PATIENT
  Age: 39 Year
  Sex: Female
  Weight: 76.5 kg

DRUGS (6)
  1. ATEZOLIZUMAB [Suspect]
     Active Substance: ATEZOLIZUMAB
     Indication: Cervix carcinoma
     Dosage: ON 07/JAN/2020, SHE RECEIVED MOST RECENT DOSE OF ATEZOLIZUMAB PRIOR TO AE/SAE?ON 12/MAY/2020, SHE RE
     Route: 041
     Dates: start: 20191017
  2. BEVACIZUMAB [Suspect]
     Active Substance: BEVACIZUMAB
     Indication: Cervix carcinoma
     Dosage: DOSE 15MG/KG2?ON 07/JAN/2020, SHE RECEIVED MOST RECENT DOSE OF BEVACIZUMAB PRIOR TO AE/SAE ONSET?ON
     Route: 042
     Dates: start: 20191017
  3. PACLITAXEL [Suspect]
     Active Substance: PACLITAXEL
     Indication: Cervix carcinoma
     Dosage: ON 18/FEB/2020, SHE RECEIVED MOST RECENT DOSE OF PACLITAXEL PRIOR TO AE/SAE ONSET
     Route: 042
     Dates: start: 20191017
  4. PHLOROGLUCINOL [Concomitant]
     Active Substance: PHLOROGLUCINOL
     Indication: Pelvic pain
     Route: 048
     Dates: start: 202001
  5. FENTANYL [Concomitant]
     Active Substance: FENTANYL
     Indication: Pelvic pain
     Dosage: 25
     Dates: start: 202002
  6. XANAX [Concomitant]
     Active Substance: ALPRAZOLAM
     Indication: Anxiety
     Route: 048
     Dates: start: 20191107

REACTIONS (1)
  - Renal colic [Not Recovered/Not Resolved]

NARRATIVE: CASE EVENT DATE: 20200225
